FAERS Safety Report 7464806-7 (Version None)
Quarter: 2011Q2

REPORT INFORMATION
  Report Type: 
  Country: None (occurrence: None)
  Receive Date: 20110509
  Receipt Date: 20110428
  Transmission Date: 20111010
  Serious: Yes (Hospitalization)
  Sender: FDA-Public Use
  Company Number: US-US-EMD SERONO, INC.-7056747

PATIENT
  Sex: Female

DRUGS (1)
  1. REBIF [Suspect]
     Indication: MULTIPLE SCLEROSIS
     Route: 058
     Dates: start: 20050429

REACTIONS (7)
  - FIBULA FRACTURE [None]
  - INJECTION SITE ERYTHEMA [None]
  - TIBIA FRACTURE [None]
  - PAIN [None]
  - PYREXIA [None]
  - FALL [None]
  - INJECTION SITE PAIN [None]
